FAERS Safety Report 6842184-1 (Version None)
Quarter: 2010Q3

REPORT INFORMATION
  Report Type: 
  Country: None (occurrence: None)
  Receive Date: 20100709
  Receipt Date: 20100702
  Transmission Date: 20110219
  Serious: Yes (Other)
  Sender: FDA-Public Use
  Company Number: 2010SP037414

PATIENT

DRUGS (2)
  1. PEG-INTRON [Suspect]
     Indication: DRUG EXPOSURE DURING PREGNANCY
  2. REBETOL [Suspect]
     Indication: DRUG EXPOSURE DURING PREGNANCY

REACTIONS (3)
  - NEONATAL DISORDER [None]
  - PATERNAL DRUGS AFFECTING FOETUS [None]
  - PREGNANCY OF PARTNER [None]
